FAERS Safety Report 19829303 (Version 2)
Quarter: 2022Q2

REPORT INFORMATION
  Report Type: Report from Study
  Country: US (occurrence: US)
  Receive Date: 20210914
  Receipt Date: 20220411
  Transmission Date: 20220720
  Serious: Yes (Other)
  Sender: FDA-Public Use
  Company Number: US-TG THERAPEUTICS INC.-TGT002003

PATIENT
  Age: 63 Year
  Sex: Male
  Weight: 179.59 kg

DRUGS (4)
  1. UBLITUXIMAB [Suspect]
     Active Substance: UBLITUXIMAB
     Indication: Chronic lymphocytic leukaemia
     Dosage: 900 MILLIGRAM D1,D8,D15 CYCLE 1;D1 CYCLE 2-6
     Route: 042
     Dates: start: 20210519, end: 20210616
  2. UBLITUXIMAB [Suspect]
     Active Substance: UBLITUXIMAB
     Dosage: 900 MILLIGRAM
     Route: 042
     Dates: start: 20210630
  3. UMBRALISIB [Suspect]
     Active Substance: UMBRALISIB
     Indication: Chronic lymphocytic leukaemia
     Dosage: 800 MILLIGRAM, QD
     Route: 048
     Dates: start: 20210519, end: 20210616
  4. UMBRALISIB [Suspect]
     Active Substance: UMBRALISIB
     Dosage: 800 MILLIGRAM, QD
     Route: 048
     Dates: start: 20210630

REACTIONS (1)
  - Chest pain [Recovered/Resolved]

NARRATIVE: CASE EVENT DATE: 20210616
